FAERS Safety Report 4743678-5 (Version None)
Quarter: 2005Q3

REPORT INFORMATION
  Report Type: 
  Country: None (occurrence: None)
  Receive Date: 20050812
  Receipt Date: 20050808
  Transmission Date: 20060218
  Serious: Yes (Death)
  Sender: FDA-Public Use
  Company Number: 200512413EU

PATIENT
  Age: 35 Year
  Sex: Female
  Weight: 67 kg

DRUGS (6)
  1. ENOXAPARIN SODIUM [Suspect]
     Indication: MYOCARDIAL INFARCTION
     Dosage: DOSE: ENOX/PLACEBO BOLUS 30MG
     Route: 040
  2. ASPIRIN [Suspect]
     Indication: MYOCARDIAL INFARCTION
     Route: 048
     Dates: start: 20050605, end: 20050606
  3. ALTEPLASE [Suspect]
     Indication: MYOCARDIAL INFARCTION
     Route: 042
     Dates: start: 20050605, end: 20050605
  4. ATORVASTATIN CALCIUM [Concomitant]
     Indication: CORONARY ARTERY DISEASE
     Route: 048
     Dates: start: 20050605, end: 20050606
  5. CLOPIDOGREL BISULFATE [Concomitant]
     Indication: CORONARY ARTERY DISEASE
     Route: 048
     Dates: start: 20050606, end: 20050606
  6. PROPRANOLOL [Concomitant]
     Indication: CORONARY ARTERY DISEASE
     Route: 048
     Dates: start: 20050606, end: 20050606

REACTIONS (7)
  - AORTIC ANEURYSM RUPTURE [None]
  - AORTIC RUPTURE [None]
  - ARTERIOSCLEROSIS [None]
  - HYPERTENSIVE NEPHROPATHY [None]
  - SHOCK HAEMORRHAGIC [None]
  - VENTRICULAR FIBRILLATION [None]
  - VENTRICULAR HYPERTROPHY [None]
